FAERS Safety Report 24993500 (Version 1)
Quarter: 2025Q1

REPORT INFORMATION
  Report Type: Spontaneous
  Country: BE (occurrence: BE)
  Receive Date: 20250221
  Receipt Date: 20250221
  Transmission Date: 20250408
  Serious: Yes (Disabling, Other)
  Sender: GLAXOSMITHKLINE
  Company Number: None

PATIENT

DRUGS (3)
  1. LAMICTAL [Suspect]
     Active Substance: LAMOTRIGINE
     Indication: Partial seizures
     Route: 065
  2. NUVARING [Suspect]
     Active Substance: ETHINYL ESTRADIOL\ETONOGESTREL
     Indication: Contraception
     Dosage: 1 DF, MO
     Route: 067
  3. FYCOMPA [Concomitant]
     Active Substance: PERAMPANEL
     Indication: Partial seizures
     Route: 065
     Dates: start: 2024

REACTIONS (2)
  - Partial seizures [Recovered/Resolved]
  - Malaise [Recovered/Resolved]
